FAERS Safety Report 9506649 (Version 1)
Quarter: 2013Q3

REPORT INFORMATION
  Report Type: Spontaneous
  Country: US (occurrence: US)
  Receive Date: 20130908
  Receipt Date: 20130908
  Transmission Date: 20140515
  Serious: Yes (Death, Hospitalization)
  Sender: FDA-Public Use
  Company Number: US-MYLANLABS-2013S1019412

PATIENT
  Age: 39 Year
  Sex: Male

DRUGS (1)
  1. METFORMIN [Suspect]
     Indication: INTENTIONAL OVERDOSE
     Dosage: 50 TABLETS OF METFORMIN 1000MG
     Route: 048

REACTIONS (6)
  - Lactic acidosis [Fatal]
  - Intentional overdose [Fatal]
  - Renal failure [Unknown]
  - Transaminases increased [Unknown]
  - Acute respiratory distress syndrome [Unknown]
  - Cardiac arrest [Fatal]
